FAERS Safety Report 18326894 (Version 3)
Quarter: 2020Q4

REPORT INFORMATION
  Report Type: Spontaneous
  Country: PL (occurrence: PL)
  Receive Date: 20200930
  Receipt Date: 20201103
  Transmission Date: 20210113
  Serious: Yes (Other)
  Sender: FDA-Public Use
  Company Number: PL-ROCHE-2686428

PATIENT
  Age: 53 Year
  Sex: Male
  Weight: 78 kg

DRUGS (7)
  1. RELANIUM [Concomitant]
     Dosage: 1 AMPOULE
     Route: 042
  2. SOLU-MEDROL [Concomitant]
     Active Substance: METHYLPREDNISOLONE SODIUM SUCCINATE
     Dosage: SALINE
  3. CLEMASTINE [Concomitant]
     Active Substance: CLEMASTINE
  4. DEXAFENICOL [Concomitant]
  5. MABTHERA [Suspect]
     Active Substance: RITUXIMAB
     Indication: RHEUMATOID ARTHRITIS
     Route: 042
     Dates: start: 20200925, end: 20200925
  6. PARACETAMOL [Concomitant]
     Active Substance: ACETAMINOPHEN
  7. ADRENALINE [Concomitant]
     Active Substance: EPINEPHRINE
     Route: 030

REACTIONS (6)
  - Feeling cold [Recovering/Resolving]
  - Seizure [Recovering/Resolving]
  - Hypotension [Recovered/Resolved]
  - Tremor [Recovered/Resolved]
  - Anaphylactic shock [Recovered/Resolved]
  - Cold sweat [Recovered/Resolved]

NARRATIVE: CASE EVENT DATE: 20200925
